FAERS Safety Report 9895256 (Version 1)
Quarter: 2014Q1

REPORT INFORMATION
  Report Type: Spontaneous
  Country: US (occurrence: US)
  Receive Date: 20140213
  Receipt Date: 20140213
  Transmission Date: 20141002
  Serious: No
  Sender: FDA-Public Use
  Company Number: US-BRISTOL-MYERS SQUIBB COMPANY-17271156

PATIENT
  Sex: Female

DRUGS (2)
  1. ORENCIA [Suspect]
     Route: 042
  2. ABATACEPT SUBQ INJECTION 125MG/ML [Suspect]
     Dosage: INFUSION ALSO
     Route: 058

REACTIONS (3)
  - Mood altered [Unknown]
  - Nausea [Not Recovered/Not Resolved]
  - Pain [Not Recovered/Not Resolved]
